FAERS Safety Report 21319060 (Version 1)
Quarter: 2022Q3

REPORT INFORMATION
  Report Type: Spontaneous
  Country: US (occurrence: US)
  Receive Date: 20220911
  Receipt Date: 20220911
  Transmission Date: 20221027
  Serious: No
  Sender: FDA-Public Use
  Company Number: US-SA-SAC20220902001246

PATIENT
  Sex: Female

DRUGS (12)
  1. AUBAGIO [Suspect]
     Active Substance: TERIFLUNOMIDE
     Indication: Multiple sclerosis
     Dosage: 7 MG QD
     Route: 048
  2. OXYBUTYNIN [Concomitant]
     Active Substance: OXYBUTYNIN
     Dosage: 100MG
  3. TOPAMAX [Concomitant]
     Active Substance: TOPIRAMATE
     Dosage: 100MG
  4. CILOSTAZOL [Concomitant]
     Active Substance: CILOSTAZOL
     Dosage: 5MG
  5. BUPROPION [Concomitant]
     Active Substance: BUPROPION
     Dosage: 5MG
  6. FLUOXETINE [Concomitant]
     Active Substance: FLUOXETINE HYDROCHLORIDE
     Dosage: 100MG
  7. AZITHROMYCIN [Concomitant]
     Active Substance: AZITHROMYCIN
     Dosage: UNK
  8. NYSTATIN [Concomitant]
     Active Substance: NYSTATIN
     Dosage: UNK
  9. TRIAMCINOLONE [Concomitant]
     Active Substance: TRIAMCINOLONE
     Indication: Multiple sclerosis
     Dosage: UNK
  10. NYSTOP [Concomitant]
     Active Substance: NYSTATIN
     Dosage: UNK
  11. AMOXICILLIN [Concomitant]
     Active Substance: AMOXICILLIN
     Dosage: UNK
  12. POTASSIUM [Concomitant]
     Active Substance: POTASSIUM
     Dosage: UNK

REACTIONS (1)
  - Product dose omission issue [Unknown]
